FAERS Safety Report 5105305-7 (Version None)
Quarter: 2006Q3

REPORT INFORMATION
  Report Type: 
  Country: None (occurrence: None)
  Receive Date: 20060912
  Receipt Date: 20060831
  Transmission Date: 20061208
  Serious: Yes (Disabling)
  Sender: FDA-Public Use
  Company Number: 225477

PATIENT
  Age: 50 Year
  Sex: Male

DRUGS (6)
  1. RAPTIVA [Suspect]
     Indication: PSORIASIS
     Dosage: 0.8, 1/WEEK, SUBCUTANEOUS
     Route: 058
     Dates: start: 20051130, end: 20060208
  2. SERTRALINE HCL [Concomitant]
  3. REBOXETINE MESILATE [Concomitant]
  4. RISPERIDONE [Concomitant]
  5. LEVOTHYROXINE SODIUM [Concomitant]
  6. GEMFIBROZIL [Concomitant]

REACTIONS (3)
  - ALOPECIA [None]
  - DERMATITIS EXFOLIATIVE [None]
  - MENTAL DISORDER [None]
